FAERS Safety Report 5486644-7 (Version None)
Quarter: 2007Q3

REPORT INFORMATION
  Report Type: 
  Country: None (occurrence: None)
  Receive Date: 20070925
  Receipt Date: 20070810
  Transmission Date: 20080115
  Serious: No
  Sender: FDA-Public Use
  Company Number: 2007US001912

PATIENT
  Age: 74 Year
  Sex: Male

DRUGS (1)
  1. VESICARE [Suspect]
     Indication: INCONTINENCE
     Dosage: 10 MG, UID/QD, ORAL
     Route: 048
     Dates: start: 20070601

REACTIONS (1)
  - DRUG INEFFECTIVE [None]
